FAERS Safety Report 24623406 (Version 1)
Quarter: 2024Q4

REPORT INFORMATION
  Report Type: Other
  Country: GB (occurrence: GB)
  Receive Date: 20241115
  Receipt Date: 20241115
  Transmission Date: 20250114
  Serious: Yes (Other)
  Sender: ASPEN
  Company Number: None

PATIENT

DRUGS (1)
  1. DEXAMETHASONE [Suspect]
     Active Substance: DEXAMETHASONE
     Indication: Surgery
     Dosage: UNK
     Route: 065

REACTIONS (6)
  - Off label use [Unknown]
  - Depression [Unknown]
  - Aggression [Unknown]
  - Blepharitis [Unknown]
  - Nasal vestibulitis [Unknown]
  - Gingivitis [Not Recovered/Not Resolved]
